FAERS Safety Report 8789302 (Version 2)
Quarter: 2013Q1

REPORT INFORMATION
  Report Type: Spontaneous
  Country: GB (occurrence: None)
  Receive Date: 20120905
  Receipt Date: 20121212
  Transmission Date: 20140127
  Serious: Yes (Disabling, Other)
  Sender: FDA-Public Use
  Company Number: GER/UKI/12/0025554

PATIENT
  Age: 56 Year
  Sex: Female
  Weight: 53.97 kg

DRUGS (1)
  1. AMLODIPINE (AMLODIPINE) [Suspect]
     Indication: HYPERTENSION
     Route: 048
     Dates: start: 20120329, end: 20120426

REACTIONS (11)
  - Local swelling [None]
  - Pain in extremity [None]
  - Depression [None]
  - Disorientation [None]
  - Dissociation [None]
  - Dizziness [None]
  - Panic attack [None]
  - Gait disturbance [None]
  - Vascular injury [None]
  - Lethargy [None]
  - Blood pressure increased [None]
